FAERS Safety Report 8002818-5 (Version None)
Quarter: 2011Q4

REPORT INFORMATION
  Report Type: 
  Country: None (occurrence: None)
  Receive Date: 20111222
  Receipt Date: 20101108
  Transmission Date: 20120403
  Serious: No
  Sender: FDA-Public Use
  Company Number: US-GLAXOSMITHKLINE-A0891294A

PATIENT
  Age: 67 Year
  Sex: Male

DRUGS (2)
  1. AVODART [Suspect]
     Indication: NOCTURIA
     Dosage: 1CAP PER DAY
     Route: 048
     Dates: start: 20100101, end: 20100701
  2. PRINIVIL [Concomitant]

REACTIONS (4)
  - DRUG INEFFECTIVE [None]
  - ERECTILE DYSFUNCTION [None]
  - SEMEN VOLUME DECREASED [None]
  - SEXUAL DYSFUNCTION [None]
